FAERS Safety Report 4610799-7 (Version None)
Quarter: 2005Q2

REPORT INFORMATION
  Report Type: 
  Country: None (occurrence: None)
  Receive Date: 20050223
  Receipt Date: 20040123
  Transmission Date: 20051028
  Serious: Yes (Other)
  Sender: FDA-Public Use
  Company Number: WAES 0401USA01782

PATIENT
  Age: 50 Year
  Sex: Female

DRUGS (5)
  1. ZOCOR [Suspect]
     Dosage: PO
     Route: 048
     Dates: start: 20010101
  2. ATORVASTATIN CALCIUM [Suspect]
     Dates: start: 20010101
  3. GEMFIBROZIL [Suspect]
     Dates: start: 20010101
  4. FENOFIBRATE [Suspect]
     Dates: start: 20010101
  5. TRAZODNE HCL [Suspect]
     Dates: start: 20010101

REACTIONS (3)
  - COGNITIVE DISORDER [None]
  - DIABETES MELLITUS [None]
  - RHABDOMYOLYSIS [None]
